FAERS Safety Report 6435316-0 (Version None)
Quarter: 2009Q4

REPORT INFORMATION
  Report Type: 
  Country: None (occurrence: None)
  Receive Date: 20091110
  Receipt Date: 20091102
  Transmission Date: 20100525
  Serious: Yes (Other)
  Sender: FDA-Public Use
  Company Number: RU-GENENTECH-293725

PATIENT
  Age: 74 Year
  Sex: Male

DRUGS (1)
  1. HERCEPTIN [Suspect]
     Indication: DRUG USE FOR UNKNOWN INDICATION
     Dosage: UNK
     Route: 065

REACTIONS (2)
  - HYPERTENSION [None]
  - SUBDURAL HAEMORRHAGE [None]
